FAERS Safety Report 5022148-3 (Version None)
Quarter: 2006Q2

REPORT INFORMATION
  Report Type: 
  Country: None (occurrence: None)
  Receive Date: 20060428
  Receipt Date: 20060119
  Transmission Date: 20061013
  Serious: Yes (Death)
  Sender: FDA-Public Use
  Company Number: COT_0382_2006

PATIENT
  Age: 58 Year
  Sex: Male
  Weight: 79.3795 kg

DRUGS (10)
  1. VENTAVIS [Suspect]
     Indication: PULMONARY HYPERTENSION
     Dosage: 5 MCG 6XD IH
     Dates: start: 20051205
  2. LASIX [Concomitant]
  3. STARLIX [Concomitant]
  4. SYNTHROID [Concomitant]
  5. MILRINONA [Concomitant]
  6. CENTRUM SILVER [Concomitant]
  7. INSPRA [Concomitant]
  8. PROTONIX [Concomitant]
  9. FOLIC ACID [Concomitant]
  10. OXYGEN [Concomitant]

REACTIONS (1)
  - RIGHT VENTRICULAR FAILURE [None]
